FAERS Safety Report 10056101 (Version 1)
Quarter: 2014Q2

REPORT INFORMATION
  Report Type: Spontaneous
  Country: SI (occurrence: SI)
  Receive Date: 20140403
  Receipt Date: 20140403
  Transmission Date: 20141212
  Serious: Yes (Other)
  Sender: FDA-Public Use
  Company Number: SI-ASTRAZENECA-2014SE23056

PATIENT
  Sex: Female

DRUGS (2)
  1. BRILIQUE [Suspect]
     Route: 048
  2. CLOPIDOGREL [Concomitant]

REACTIONS (2)
  - Cardiac arrest [Unknown]
  - Bradycardia [Unknown]
